FAERS Safety Report 23788022 (Version 2)
Quarter: 2024Q2

REPORT INFORMATION
  Report Type: Spontaneous
  Country: FR (occurrence: FR)
  Receive Date: 20240426
  Receipt Date: 20240514
  Transmission Date: 20240716
  Serious: Yes (Other)
  Sender: FDA-Public Use
  Company Number: FR-AFSSAPS-PP2024000394

PATIENT
  Age: 83 Year
  Sex: Male
  Weight: 69 kg

DRUGS (3)
  1. ESCITALOPRAM OXALATE [Suspect]
     Active Substance: ESCITALOPRAM OXALATE
     Indication: Depression
     Dosage: 5 MILLIGRAM, ONCE A DAY (5MG /J)
     Route: 048
     Dates: start: 20240203, end: 20240306
  2. LANSOPRAZOLE [Interacting]
     Active Substance: LANSOPRAZOLE
     Indication: Prophylaxis
     Dosage: 30 MILLIGRAM, TWO TIMES A DAY
     Route: 048
     Dates: start: 20240303
  3. ALFUZOSIN [Interacting]
     Active Substance: ALFUZOSIN
     Indication: Benign prostatic hyperplasia
     Dosage: UNK (UNKNOWN DOSE)
     Route: 048

REACTIONS (2)
  - Electrocardiogram QT prolonged [Recovered/Resolved]
  - Drug interaction [Recovered/Resolved]

NARRATIVE: CASE EVENT DATE: 20240306
